FAERS Safety Report 4452468-2 (Version None)
Quarter: 2004Q3

REPORT INFORMATION
  Report Type: 
  Country: None (occurrence: None)
  Receive Date: 20040916
  Receipt Date: 20040902
  Transmission Date: 20050211
  Serious: Yes (Other)
  Sender: FDA-Public Use
  Company Number: TMDP-GE-0409S-0048

PATIENT
  Age: 24 Year
  Sex: Female
  Weight: 76 kg

DRUGS (1)
  1. OSTEOSOL (TECHNETIUM TC99M MEDRONATE) [Suspect]
     Indication: HODGKIN'S DISEASE
     Dosage: 576 MBQ, SINGLE DOSE, I.V.
     Route: 042
     Dates: start: 20040902, end: 20040902

REACTIONS (3)
  - CONVULSION [None]
  - DYSPNOEA [None]
  - SENSORY DISTURBANCE [None]
